FAERS Safety Report 4949454-2 (Version None)
Quarter: 2006Q1

REPORT INFORMATION
  Report Type: 
  Country: None (occurrence: None)
  Receive Date: 20060321
  Receipt Date: 20060126
  Transmission Date: 20060701
  Serious: Yes (Other)
  Sender: FDA-Public Use
  Company Number: JP-ROCHE-434371

PATIENT
  Age: 75 Year
  Sex: Female
  Weight: 75 kg

DRUGS (8)
  1. TAMIFLU [Suspect]
     Route: 048
     Dates: start: 20060121, end: 20060122
  2. PL [Concomitant]
     Route: 048
     Dates: start: 20060121, end: 20060123
  3. NORVASC [Concomitant]
     Route: 048
     Dates: start: 20040615
  4. GASTER D [Concomitant]
     Route: 048
     Dates: start: 20021209
  5. LASIX [Concomitant]
     Route: 048
     Dates: start: 20040615
  6. ZYLORIC [Concomitant]
     Route: 048
     Dates: start: 20040615
  7. ALDACTONE [Concomitant]
     Route: 048
     Dates: start: 20040615
  8. ALOSENN [Concomitant]
     Route: 048
     Dates: start: 20040615

REACTIONS (3)
  - DUODENITIS [None]
  - GASTRIC MUCOSAL LESION [None]
  - REFLUX OESOPHAGITIS [None]
